FAERS Safety Report 6104820-7 (Version None)
Quarter: 2009Q1

REPORT INFORMATION
  Report Type: 
  Country: None (occurrence: None)
  Receive Date: 20090306
  Receipt Date: 20090303
  Transmission Date: 20090719
  Serious: Yes (Death)
  Sender: FDA-Public Use
  Company Number: DE-JNJFOC-20090300373

PATIENT
  Age: 97 Year
  Sex: Female

DRUGS (14)
  1. HALDOL [Suspect]
     Indication: DRUG USE FOR UNKNOWN INDICATION
     Route: 048
  2. DIPIPERON [Suspect]
     Indication: DRUG USE FOR UNKNOWN INDICATION
     Route: 048
  3. ENALAPRIL [Concomitant]
     Route: 048
  4. FUROSEMID [Concomitant]
     Route: 048
  5. GRABAPENTIN [Concomitant]
     Route: 048
  6. LEVOTHYROXINE SODIUM [Concomitant]
     Route: 048
  7. NITRENDIPIN [Concomitant]
     Route: 048
  8. DICLAC [Concomitant]
     Route: 048
  9. ASPIRIN [Concomitant]
     Route: 048
  10. SODIUM CHLORIDE [Concomitant]
     Route: 048
  11. FRAXIPARIN [Concomitant]
     Route: 058
  12. MELPERON [Concomitant]
     Route: 065
  13. METOPROLOL SUCCINATE [Concomitant]
     Route: 065
  14. ESIDRIX [Concomitant]
     Route: 065

REACTIONS (3)
  - AKATHISIA [None]
  - DEATH [None]
  - GAIT DISTURBANCE [None]
